FAERS Safety Report 12700457 (Version 1)
Quarter: 2016Q3

REPORT INFORMATION
  Report Type: Spontaneous
  Country: US (occurrence: US)
  Receive Date: 20160830
  Receipt Date: 20160830
  Transmission Date: 20161109
  Serious: No
  Sender: FDA-Public Use
  Company Number: US-SA-2016SA041541

PATIENT
  Age: 21 Year

DRUGS (1)
  1. FABRAZYME [Suspect]
     Active Substance: AGALSIDASE BETA
     Route: 041

REACTIONS (3)
  - Erythema [Unknown]
  - Hypotension [Unknown]
  - Swelling face [Unknown]

NARRATIVE: CASE EVENT DATE: 20150127
